FAERS Safety Report 9341064 (Version 1)
Quarter: 2013Q2

REPORT INFORMATION
  Report Type: Spontaneous
  Country: US (occurrence: US)
  Receive Date: 20130610
  Receipt Date: 20130610
  Transmission Date: 20140414
  Serious: Yes (Hospitalization)
  Sender: FDA-Public Use
  Company Number: US-B.I. PHARMACEUTICALS,INC./RIDGEFIELD-2013-BI-16162BP

PATIENT
  Age: 64 Year
  Sex: Female

DRUGS (9)
  1. MICARDIS [Suspect]
     Indication: HYPERTENSION
     Dosage: 80 MG
     Route: 048
     Dates: start: 2006
  2. LANTUS INSULIN [Concomitant]
     Indication: DIABETES MELLITUS
     Dosage: FORMULATION: (SUBCUTANEOUS)
     Route: 058
  3. GLYBURIDE [Concomitant]
     Indication: DIABETES MELLITUS
     Route: 048
  4. COREG [Concomitant]
     Dosage: 6.25 MG
     Route: 048
  5. BUMETANIDE [Concomitant]
     Route: 048
  6. COUMADIN [Concomitant]
     Route: 048
  7. XANAX [Concomitant]
     Indication: ANXIETY
     Route: 048
  8. EFFEXOR [Concomitant]
     Route: 048
  9. PROTONIX [Concomitant]
     Indication: ABDOMINAL DISCOMFORT
     Route: 048

REACTIONS (6)
  - Local swelling [Recovered/Resolved]
  - Abdominal distension [Recovered/Resolved]
  - Device related infection [Recovered/Resolved]
  - Heart rate increased [Recovered/Resolved]
  - Loss of consciousness [Recovered/Resolved]
  - Dental caries [Not Recovered/Not Resolved]
